FAERS Safety Report 9281783 (Version 2)
Quarter: 2013Q2

REPORT INFORMATION
  Report Type: Spontaneous
  Country: US (occurrence: US)
  Receive Date: 20130510
  Receipt Date: 20130628
  Transmission Date: 20140414
  Serious: Yes (Hospitalization)
  Sender: FDA-Public Use
  Company Number: US-B.I. PHARMACEUTICALS,INC./RIDGEFIELD-2013-BI-13017BP

PATIENT
  Age: 78 Year
  Sex: Male
  Weight: 93.89 kg

DRUGS (16)
  1. PRADAXA [Suspect]
     Indication: ANTICOAGULANT THERAPY
     Dosage: 300 MG
     Route: 048
     Dates: start: 20120301, end: 20120415
  2. PRADAXA [Suspect]
     Indication: ATRIAL FIBRILLATION
  3. ASPIRIN [Concomitant]
     Dosage: 81 MG
     Route: 048
  4. CARVEDILOL [Concomitant]
     Dosage: 6.25 MG
  5. CYANOCOBALAMIN [Concomitant]
     Dosage: 1000 MCG
  6. EZETIMIBE [Concomitant]
     Dosage: 10 MG
     Route: 048
  7. FLUTICASONE [Concomitant]
     Dosage: 50 MCG
  8. GLIMEPIRIDE [Concomitant]
     Dosage: 2 MG
  9. LOSARTAN-HYDROCHLOROTHIAZIDE [Concomitant]
  10. PIOGLITAZONE [Concomitant]
     Dosage: 30 MG
  11. LORATIDINE [Concomitant]
     Dosage: 10 MG
  12. PRAVASTATIN [Concomitant]
     Dosage: 40 MG
     Route: 048
  13. RANITIDINE HCL [Concomitant]
     Indication: GASTROOESOPHAGEAL REFLUX DISEASE
     Dosage: 150 MG
  14. SILDENAFIL [Concomitant]
     Dosage: 100 MG
  15. CHOLECALCIFEROL [Concomitant]
     Dosage: 5000 U
     Route: 048
  16. BYETTA [Concomitant]
     Route: 058

REACTIONS (2)
  - Upper gastrointestinal haemorrhage [Unknown]
  - Haemorrhagic anaemia [Unknown]
